FAERS Safety Report 7762743-1 (Version None)
Quarter: 2011Q3

REPORT INFORMATION
  Report Type: 
  Country: None (occurrence: None)
  Receive Date: 20110920
  Receipt Date: 20110914
  Transmission Date: 20111222
  Serious: Yes (Other)
  Sender: FDA-Public Use
  Company Number: US-PFIZER INC-2011217395

PATIENT
  Sex: Male
  Weight: 118 kg

DRUGS (5)
  1. SOMAVERT [Suspect]
     Dosage: UNK
     Dates: start: 20100101, end: 20110101
  2. ENALAPRIL [Concomitant]
     Indication: BLOOD PRESSURE ABNORMAL
     Dosage: 20 MG, DAILY
  3. NEXIUM [Concomitant]
     Indication: GASTROOESOPHAGEAL REFLUX DISEASE
     Dosage: 40 MG, DAILY
     Route: 048
  4. SOMAVERT [Suspect]
     Dosage: UNK
     Dates: start: 20110101
  5. SINGULAIR [Concomitant]
     Indication: SINUSITIS
     Dosage: UNK

REACTIONS (4)
  - CONVULSION [None]
  - EYE PAIN [None]
  - SKIN INDURATION [None]
  - HEADACHE [None]
